FAERS Safety Report 7781384-3 (Version None)
Quarter: 2011Q3

REPORT INFORMATION
  Report Type: 
  Country: None (occurrence: None)
  Receive Date: 20110927
  Receipt Date: 20110920
  Transmission Date: 20111222
  Serious: Yes (Hospitalization)
  Sender: FDA-Public Use
  Company Number: FR-MERCK-1109FRA00092

PATIENT
  Age: 89 Year
  Sex: Female

DRUGS (5)
  1. FOSAMAX [Suspect]
     Indication: OSTEOPOROSIS
     Route: 048
     Dates: start: 20050101, end: 20110101
  2. WARFARIN SODIUM [Concomitant]
     Indication: THROMBOPHLEBITIS SUPERFICIAL
     Route: 048
  3. BROMAZEPAM [Suspect]
     Route: 048
     Dates: start: 20110601, end: 20110601
  4. CALCIUM CARBONATE [Concomitant]
     Indication: OSTEOPOROSIS
     Route: 048
  5. VITAMIN D (UNSPECIFIED) [Concomitant]
     Indication: OSTEOPOROSIS
     Route: 048

REACTIONS (4)
  - UPPER LIMB FRACTURE [None]
  - FALL [None]
  - MALAISE [None]
  - ALOPECIA [None]
